FAERS Safety Report 8126306-0 (Version None)
Quarter: 2012Q1

REPORT INFORMATION
  Report Type: 
  Country: None (occurrence: None)
  Receive Date: 20120209
  Receipt Date: 20120206
  Transmission Date: 20120608
  Serious: Yes (Hospitalization)
  Sender: FDA-Public Use
  Company Number: CA-AMGEN-CANSP2012001129

PATIENT
  Age: 54 Year
  Sex: Male
  Weight: 98.866 kg

DRUGS (5)
  1. METHOTREXATE [Concomitant]
     Indication: RHEUMATOID ARTHRITIS
     Dosage: 25 MG, QWK
     Route: 048
     Dates: start: 20080901
  2. VOLTAREN [Concomitant]
     Indication: RHEUMATOID ARTHRITIS
     Dosage: 75 MG, QD
     Route: 048
     Dates: start: 20080901
  3. ENBREL [Suspect]
     Indication: RHEUMATOID ARTHRITIS
     Dosage: 50 MG, QWK
     Route: 058
     Dates: start: 20110601
  4. PLAQUENIL [Concomitant]
     Indication: RHEUMATOID ARTHRITIS
     Dosage: 400 MG, QD
     Route: 048
     Dates: start: 20100801
  5. ISONIAZID [Concomitant]
     Dosage: 300 MG, QD
     Route: 048
     Dates: start: 20110401

REACTIONS (2)
  - SKIN LESION [None]
  - BURSITIS INFECTIVE [None]
